FAERS Safety Report 7918860-6 (Version None)
Quarter: 2011Q4

REPORT INFORMATION
  Report Type: 
  Country: None (occurrence: None)
  Receive Date: 20111116
  Receipt Date: 20111110
  Transmission Date: 20120403
  Serious: Yes (Death, Other)
  Sender: FDA-Public Use
  Company Number: CA-CELGENEUS-028-50794-11111533

PATIENT
  Age: 78 Year

DRUGS (1)
  1. VIDAZA [Suspect]
     Route: 065
     Dates: end: 20101025

REACTIONS (4)
  - ACUTE MYELOID LEUKAEMIA [None]
  - DISEASE PROGRESSION [None]
  - ABSCESS [None]
  - PNEUMONIA [None]
